FAERS Safety Report 7724854-6 (Version None)
Quarter: 2011Q3

REPORT INFORMATION
  Report Type: 
  Country: None (occurrence: None)
  Receive Date: 20110829
  Receipt Date: 20110818
  Transmission Date: 20111222
  Serious: Yes (Other)
  Sender: FDA-Public Use
  Company Number: TPA2011A04725

PATIENT
  Age: 78 Year
  Sex: Female
  Weight: 95.2554 kg

DRUGS (8)
  1. WARFARIN SODIUM [Concomitant]
  2. ACTOS [Suspect]
     Indication: TYPE 2 DIABETES MELLITUS
     Dosage: 15 MG, 1 IN 1 D, PER ORAL, 30 MG, 1IN1 D, PER ORAL
     Route: 048
     Dates: start: 20110329, end: 20110428
  3. LEVOTHYROXINE SODIUM [Concomitant]
  4. GLIPIZIDE [Concomitant]
  5. LOSARTAN POTASSIUM [Concomitant]
  6. METOPROLOL TARTRATE [Concomitant]
  7. CRESTOR [Concomitant]
  8. ISOSORBIDE (ISOSORBIDE) [Concomitant]

REACTIONS (3)
  - SALPINGO-OOPHORITIS [None]
  - RENAL IMPAIRMENT [None]
  - CORONARY ARTERY OCCLUSION [None]
